FAERS Safety Report 7926187-1 (Version None)
Quarter: 2011Q4

REPORT INFORMATION
  Report Type: 
  Country: None (occurrence: None)
  Receive Date: 20111118
  Receipt Date: 20110419
  Transmission Date: 20120403
  Serious: No
  Sender: FDA-Public Use
  Company Number: US-AMGEN-USASP2011002860

PATIENT
  Age: 76 Year
  Sex: Female

DRUGS (2)
  1. ENBREL [Suspect]
     Indication: RHEUMATOID ARTHRITIS
     Dosage: 50 MG, QWK
     Dates: start: 20090420
  2. TREXALL [Concomitant]
     Dosage: 1 MG, UNK
     Dates: start: 19940101

REACTIONS (3)
  - KIDNEY INFECTION [None]
  - BRONCHITIS [None]
  - SINUS DISORDER [None]
